FAERS Safety Report 18338169 (Version 1)
Quarter: 2020Q4

REPORT INFORMATION
  Report Type: Spontaneous
  Country: GB (occurrence: GB)
  Receive Date: 20201002
  Receipt Date: 20201002
  Transmission Date: 20210113
  Serious: Yes (Disabling, Other)
  Sender: FDA-Public Use
  Company Number: GB-LEO PHARMA-331895

PATIENT
  Age: 27 Year
  Sex: Female

DRUGS (3)
  1. BETNOVATE [Suspect]
     Active Substance: BETAMETHASONE
     Indication: ECZEMA
     Dosage: UNKNOWN
  2. DERMOVATE [Suspect]
     Active Substance: CLOBETASOL
     Indication: ECZEMA
     Dosage: UNKNOWN
  3. PROTOPIC [Suspect]
     Active Substance: TACROLIMUS
     Indication: ECZEMA
     Dosage: UNKNOWN
     Route: 061

REACTIONS (2)
  - Steroid withdrawal syndrome [Recovered/Resolved with Sequelae]
  - Drug ineffective [Unknown]
